FAERS Safety Report 9637528 (Version 1)
Quarter: 2013Q4

REPORT INFORMATION
  Report Type: Report from Study
  Country: CA (occurrence: CA)
  Receive Date: 20131022
  Receipt Date: 20131022
  Transmission Date: 20140711
  Serious: Yes (Hospitalization)
  Sender: FDA-Public Use
  Company Number: PHHO2013CA013397

PATIENT
  Age: 22 Year
  Sex: Female

DRUGS (3)
  1. FTY 720 [Suspect]
     Dosage: 0.5 MG, QD
     Route: 048
     Dates: start: 20130319
  2. APO-NORTRIPTYLINE [Concomitant]
     Indication: MIGRAINE
     Dosage: 25 MG, QD
     Route: 048
     Dates: start: 20120121
  3. ADVIL//IBUPROFEN [Concomitant]
     Indication: MIGRAINE
     Dosage: 200 MG, PRN
     Route: 048
     Dates: start: 201010

REACTIONS (1)
  - Ovarian cyst ruptured [Recovered/Resolved]
